FAERS Safety Report 20359544 (Version 1)
Quarter: 2022Q1

REPORT INFORMATION
  Report Type: Spontaneous
  Country: US (occurrence: US)
  Receive Date: 20220121
  Receipt Date: 20220121
  Transmission Date: 20220423
  Serious: No
  Sender: FDA-Public Use
  Company Number: US-TEVA-2022-US-1998699

PATIENT
  Age: 81 Year
  Sex: Female

DRUGS (2)
  1. CARVEDILOL [Suspect]
     Active Substance: CARVEDILOL
     Indication: Blood pressure abnormal
     Route: 065
     Dates: start: 201711
  2. ANASTROZOLE [Concomitant]
     Active Substance: ANASTROZOLE
     Indication: Neoplasm malignant
     Route: 065
     Dates: start: 202108

REACTIONS (2)
  - Feeling abnormal [Recovered/Resolved]
  - Tumour marker increased [Recovered/Resolved]

NARRATIVE: CASE EVENT DATE: 20210101
